FAERS Safety Report 8046182-4 (Version None)
Quarter: 2012Q1

REPORT INFORMATION
  Report Type: 
  Country: None (occurrence: None)
  Receive Date: 20120112
  Receipt Date: 20120112
  Transmission Date: 20120608
  Serious: Yes (Other)
  Sender: FDA-Public Use
  Company Number: None

PATIENT
  Age: 65 Year
  Sex: Male

DRUGS (4)
  1. AMPYRA [Suspect]
     Indication: MULTIPLE SCLEROSIS
     Dosage: 10MG BID ORALLY
     Route: 048
     Dates: start: 20110423, end: 20110517
  2. ZOLPIDEM [Concomitant]
  3. PREDNISONE [Concomitant]
  4. NOVOLIN 70/30 [Concomitant]

REACTIONS (2)
  - HYPOAESTHESIA [None]
  - NO THERAPEUTIC RESPONSE [None]
